FAERS Safety Report 9417749 (Version 5)
Quarter: 2016Q2

REPORT INFORMATION
  Report Type: Spontaneous
  Country: US (occurrence: US)
  Receive Date: 20130724
  Receipt Date: 20160621
  Transmission Date: 20160815
  Serious: Yes (Hospitalization, Other)
  Sender: FDA-Public Use
  Company Number: US-GLAXOSMITHKLINE-A1033595A

PATIENT
  Age: 53 Year
  Sex: Female
  Weight: 54.42 kg

DRUGS (9)
  1. PEPCID AC [Concomitant]
     Active Substance: FAMOTIDINE
  2. CARVEDILOL. [Suspect]
     Active Substance: CARVEDILOL
     Indication: RESTRICTIVE CARDIOMYOPATHY
     Dosage: 3.125 MG, BID
     Route: 048
     Dates: start: 2007
  3. COREG CR [Suspect]
     Active Substance: CARVEDILOL PHOSPHATE
     Indication: CARDIAC FAILURE
  4. COREG CR [Suspect]
     Active Substance: CARVEDILOL PHOSPHATE
     Indication: RESTRICTIVE CARDIOMYOPATHY
     Dosage: 20 MG, QD
     Route: 048
     Dates: start: 2007
  5. COREG CR [Suspect]
     Active Substance: CARVEDILOL PHOSPHATE
     Indication: HAEMOCHROMATOSIS
  6. RAMIPRIL. [Concomitant]
     Active Substance: RAMIPRIL
  7. CARVEDILOL. [Suspect]
     Active Substance: CARVEDILOL
     Indication: CARDIAC FAILURE
  8. PAXIL [Concomitant]
     Active Substance: PAROXETINE HYDROCHLORIDE
  9. SPIRONOLACTONE. [Concomitant]
     Active Substance: SPIRONOLACTONE

REACTIONS (42)
  - Angina pectoris [Recovered/Resolved]
  - Meningioma [Unknown]
  - Adverse event [Recovered/Resolved]
  - Surgery [Unknown]
  - Brain operation [Unknown]
  - Craniotomy [Unknown]
  - Ill-defined disorder [Unknown]
  - Central nervous system lesion [Not Recovered/Not Resolved]
  - Condition aggravated [Unknown]
  - Therapeutic response decreased [Unknown]
  - Drug administration error [Unknown]
  - Loss of consciousness [Recovered/Resolved]
  - Vitreous detachment [Unknown]
  - Vitreous haemorrhage [Unknown]
  - Tricuspid valve incompetence [Not Recovered/Not Resolved]
  - Dyspnoea [Unknown]
  - Bundle branch block left [Not Recovered/Not Resolved]
  - Asthenia [Unknown]
  - Cardiac disorder [Unknown]
  - Drug ineffective [Recovered/Resolved]
  - Mental impairment [Recovered/Resolved]
  - Retinal tear [Unknown]
  - Mitral valve incompetence [Not Recovered/Not Resolved]
  - Depression [Unknown]
  - Gastrooesophageal reflux disease [Unknown]
  - Major depression [Unknown]
  - Neurosurgery [Unknown]
  - Nightmare [Unknown]
  - Hypotension [Recovered/Resolved]
  - Salivary gland cancer [Not Recovered/Not Resolved]
  - Pericardial effusion [Not Recovered/Not Resolved]
  - Feeling abnormal [Unknown]
  - Confusional state [Unknown]
  - Fall [Recovered/Resolved]
  - Dizziness [Recovered/Resolved]
  - Fatigue [Unknown]
  - Dyspnoea exertional [Unknown]
  - Brain neoplasm [Recovered/Resolved]
  - Hospitalisation [Unknown]
  - Suffocation feeling [Recovered/Resolved]
  - Pain in jaw [Recovered/Resolved]
  - Cerebral disorder [Unknown]

NARRATIVE: CASE EVENT DATE: 2007
